FAERS Safety Report 10535837 (Version 2)
Quarter: 2014Q4

REPORT INFORMATION
  Report Type: Spontaneous
  Country: US (occurrence: US)
  Receive Date: 20141022
  Receipt Date: 20141022
  Transmission Date: 20150529
  Serious: No
  Sender: FDA-Public Use
  Company Number: US-RECKITT BENCKISER PHARMACEUTICAL, INC-RB-59549-2013

PATIENT

DRUGS (8)
  1. ZUBSOLV [Suspect]
     Active Substance: BUPRENORPHINE HYDROCHLORIDE\NALOXONE HYDROCHLORIDE
     Indication: DRUG DEPENDENCE
     Route: 060
     Dates: start: 201310
  2. HYDROCHLOROTHIAZIDE. [Concomitant]
     Active Substance: HYDROCHLOROTHIAZIDE
     Indication: HYPERTENSION
     Dosage: DOSING DETAILS UNKNOWN; DAILY
     Route: 048
     Dates: start: 2011
  3. SUBOXONE [Suspect]
     Active Substance: BUPRENORPHINE HYDROCHLORIDE\NALOXONE HYDROCHLORIDE
     Dosage: SUBOXONE FILM
     Route: 060
     Dates: start: 201309, end: 201309
  4. OMEPRAZOLE. [Concomitant]
     Active Substance: OMEPRAZOLE
     Indication: GASTRITIS
     Dosage: DOSING DETAILS UNKNOWN; DAILY
     Route: 048
     Dates: start: 2012
  5. ALCOHOL. [Suspect]
     Active Substance: ALCOHOL
     Indication: PRODUCT USED FOR UNKNOWN INDICATION
     Dosage: ONCE A WEEK; UNKNOWN AMOUNT
     Route: 048
  6. SUBOXONE [Suspect]
     Active Substance: BUPRENORPHINE HYDROCHLORIDE\NALOXONE HYDROCHLORIDE
     Indication: DRUG DEPENDENCE
     Dosage: SUBOXONE FILM
     Route: 060
     Dates: start: 20130725, end: 201309
  7. SUBOXONE [Suspect]
     Active Substance: BUPRENORPHINE HYDROCHLORIDE\NALOXONE HYDROCHLORIDE
     Dosage: SUBOXONE FILM
     Route: 060
     Dates: start: 201309, end: 201310
  8. LISINOPRIL. [Concomitant]
     Active Substance: LISINOPRIL
     Indication: HYPERTENSION
     Dosage: DOSING DETAILS UNKNOWN; DAILY
     Route: 048
     Dates: start: 2011

REACTIONS (5)
  - Alcohol abuse [Unknown]
  - Swollen tongue [Recovering/Resolving]
  - Ageusia [Recovering/Resolving]
  - Glossodynia [Recovering/Resolving]
  - Scar [Not Recovered/Not Resolved]

NARRATIVE: CASE EVENT DATE: 2013
